FAERS Safety Report 6671384-9 (Version None)
Quarter: 2010Q2

REPORT INFORMATION
  Report Type: 
  Country: None (occurrence: None)
  Receive Date: 20100407
  Receipt Date: 20100329
  Transmission Date: 20101027
  Serious: Yes (Hospitalization)
  Sender: FDA-Public Use
  Company Number: B0592879A

PATIENT
  Age: 15 Year
  Sex: Male

DRUGS (1)
  1. BUPROPION HCL [Suspect]
     Dosage: 3000MG SINGLE DOSE
     Route: 065

REACTIONS (17)
  - AGITATION [None]
  - CLONUS [None]
  - CONFUSIONAL STATE [None]
  - DELIRIUM [None]
  - DRUG TOXICITY [None]
  - DRY MOUTH [None]
  - FLUSHING [None]
  - HALLUCINATION [None]
  - HYPERREFLEXIA [None]
  - INCOHERENT [None]
  - MUSCLE RIGIDITY [None]
  - MYDRIASIS [None]
  - OVERDOSE [None]
  - RESTLESSNESS [None]
  - SEROTONIN SYNDROME [None]
  - TACHYCARDIA [None]
  - TONIC CLONIC MOVEMENTS [None]
